FAERS Safety Report 19468387 (Version 1)
Quarter: 2021Q2

REPORT INFORMATION
  Report Type: Report from Study
  Country: US (occurrence: US)
  Receive Date: 20210628
  Receipt Date: 20210628
  Transmission Date: 20210717
  Serious: No
  Sender: FDA-Public Use
  Company Number: US-BIOVITRUM-2021US3434

PATIENT
  Age: 54 Year
  Sex: Female

DRUGS (1)
  1. KINERET [Suspect]
     Active Substance: ANAKINRA
     Indication: CONNECTIVE TISSUE DISORDER
     Route: 058
     Dates: start: 20190520

REACTIONS (5)
  - Pain in extremity [Unknown]
  - Off label use [Not Recovered/Not Resolved]
  - Inflammation [Unknown]
  - Pyrexia [Unknown]
  - Gastroenteritis viral [Unknown]

NARRATIVE: CASE EVENT DATE: 20190520
